FAERS Safety Report 15309677 (Version 1)
Quarter: 2018Q3

REPORT INFORMATION
  Report Type: Other
  Country: ES (occurrence: ES)
  Receive Date: 20180823
  Receipt Date: 20180823
  Transmission Date: 20181010
  Serious: Yes (Life-Threatening)
  Sender: FDA-Public Use
  Company Number: ES-APOTEX-2018AP019292

PATIENT
  Age: 28 Year
  Sex: Female

DRUGS (1)
  1. AMOXICILLIN, CLAVULANATE [Suspect]
     Active Substance: AMOXICILLIN\CLAVULANATE POTASSIUM
     Indication: PHARYNGITIS
     Dosage: 500 MG, TID
     Route: 048
     Dates: start: 20171116, end: 20171117

REACTIONS (2)
  - Face oedema [Recovered/Resolved]
  - Bronchospasm [Recovered/Resolved]

NARRATIVE: CASE EVENT DATE: 20171117
